FAERS Safety Report 15116553 (Version 1)
Quarter: 2018Q3

REPORT INFORMATION
  Report Type: Spontaneous
  Country: CN (occurrence: CN)
  Receive Date: 20180706
  Receipt Date: 20180706
  Transmission Date: 20181010
  Serious: Yes (Other)
  Sender: FDA-Public Use
  Company Number: CN-ASTRAZENECA-2018SE87161

PATIENT
  Sex: Female
  Weight: 38 kg

DRUGS (1)
  1. GEFITINIB. [Suspect]
     Active Substance: GEFITINIB
     Indication: CHEMOTHERAPY
     Route: 048
     Dates: start: 20180408, end: 20180422

REACTIONS (1)
  - Gastrointestinal disorder [Recovering/Resolving]
